FAERS Safety Report 8616756-8 (Version None)
Quarter: 2012Q3

REPORT INFORMATION
  Report Type: 
  Country: None (occurrence: None)
  Receive Date: 20120823
  Receipt Date: 20120820
  Transmission Date: 20120928
  Serious: Yes (Death, Life-Threatening)
  Sender: FDA-Public Use
  Company Number: ES-009507513-1207ESP006414

PATIENT

DRUGS (2)
  1. ROCURONIUM BROMIDE [Suspect]
     Indication: ARRHYTHMIA
     Dosage: UNK
     Dates: start: 20100603, end: 20100603
  2. ESMOLOL HCL [Suspect]
     Indication: ARRHYTHMIA

REACTIONS (3)
  - MULTI-ORGAN FAILURE [None]
  - RESPIRATORY ARREST [None]
  - DRUG NAME CONFUSION [None]
